FAERS Safety Report 8151619 (Version 3)
Quarter: 2013Q1

REPORT INFORMATION
  Report Type: Spontaneous
  Country: US (occurrence: US)
  Receive Date: 20110922
  Receipt Date: 20130327
  Transmission Date: 20140127
  Serious: Yes (Hospitalization)
  Sender: FDA-Public Use
  Company Number: US-ASTRAZENECA-2010SE45213

PATIENT
  Age: 59 Year
  Sex: Female
  Weight: 56.7 kg

DRUGS (10)
  1. NEXIUM [Suspect]
     Indication: DYSPEPSIA
     Route: 048
  2. NEXIUM [Suspect]
     Indication: GASTROOESOPHAGEAL REFLUX DISEASE
     Route: 048
  3. SEROQUEL [Suspect]
     Indication: BIPOLAR DISORDER
     Route: 048
  4. SEROQUEL [Suspect]
     Indication: INSOMNIA
     Route: 048
  5. SEROQUEL [Suspect]
     Indication: BIPOLAR DISORDER
     Route: 048
  6. SEROQUEL [Suspect]
     Indication: INSOMNIA
     Route: 048
  7. SEROQUEL [Suspect]
     Indication: BIPOLAR DISORDER
     Route: 048
  8. SEROQUEL [Suspect]
     Indication: INSOMNIA
     Route: 048
  9. BACTRIM [Concomitant]
     Indication: BRONCHITIS
  10. BACTRIM [Concomitant]
     Indication: SINUSITIS

REACTIONS (5)
  - Hypertension [Unknown]
  - Blood sodium decreased [Unknown]
  - Bronchitis [Unknown]
  - Sinusitis [Unknown]
  - Oropharyngeal pain [Unknown]
